FAERS Safety Report 9063059 (Version 1)
Quarter: 2013Q1

REPORT INFORMATION
  Report Type: Report from Study
  Country: CA (occurrence: CA)
  Receive Date: 20130213
  Receipt Date: 20130213
  Transmission Date: 20140127
  Serious: Yes (Other)
  Sender: FDA-Public Use
  Company Number: CA-JNJFOC-20130117274

PATIENT
  Sex: Male
  Weight: 92 kg

DRUGS (3)
  1. REMICADE [Suspect]
     Indication: RHEUMATOID ARTHRITIS
     Route: 042
     Dates: start: 20080110, end: 20121206
  2. METHOTREXATE [Concomitant]
     Route: 048
  3. ARAVA [Concomitant]
     Route: 048

REACTIONS (2)
  - Surgery [Recovered/Resolved]
  - Therapeutic response decreased [Unknown]
